FAERS Safety Report 8233656-6 (Version None)
Quarter: 2012Q1

REPORT INFORMATION
  Report Type: 
  Country: None (occurrence: None)
  Receive Date: 20120326
  Receipt Date: 20120320
  Transmission Date: 20120608
  Serious: Yes (Other)
  Sender: FDA-Public Use
  Company Number: PHHY2011DE77287

PATIENT
  Age: 48 Year
  Sex: Female

DRUGS (5)
  1. ZOMETA [Suspect]
     Dosage: 4 MG/ 5 ML EVERY 6 MONTHS
     Route: 042
     Dates: start: 20090901
  2. ZOMETA [Suspect]
     Indication: BREAST CANCER
     Dosage: 4 MG/ 5 ML EVERY 6 MONTHS
     Dates: start: 20090301
  3. ZOMETA [Suspect]
     Dosage: 4 MG, 4 MG/ 5 ML EVERY 6 MONTHS
     Route: 042
     Dates: start: 20110301, end: 20110301
  4. ZOMETA [Suspect]
     Dosage: 4 MG/ 5 ML EVERY 6 MONTHS
     Route: 042
     Dates: start: 20100501
  5. TAMOXIFEN CITRATE [Concomitant]
     Indication: BREAST CANCER
     Dosage: UNK UKN, UNK
     Route: 065

REACTIONS (8)
  - ERYTHEMA [None]
  - OEDEMA [None]
  - OSTEONECROSIS OF JAW [None]
  - BONE DISORDER [None]
  - TOOTH EXTRACTION [None]
  - GINGIVAL SWELLING [None]
  - TOOTH DISORDER [None]
  - BONE LESION [None]
